FAERS Safety Report 6842735-7 (Version None)
Quarter: 2010Q3

REPORT INFORMATION
  Report Type: 
  Country: None (occurrence: None)
  Receive Date: 20100709
  Receipt Date: 20100628
  Transmission Date: 20110219
  Serious: Yes (Life-Threatening, Hospitalization, Other)
  Sender: FDA-Public Use
  Company Number: GB-ACCORD-005381

PATIENT
  Age: 46 Year
  Sex: Female

DRUGS (19)
  1. SIMVASTATIN [Suspect]
     Indication: PRODUCT USED FOR UNKNOWN INDICATION
     Dosage: 40.00-MG-1.00PER-1.0DAYS / ORAL
     Route: 048
  2. FUSIDIN(FUSIDIN) [Suspect]
     Indication: ARTHRITIS BACTERIAL
     Dosage: 500.00-MG-3.00PER-1.00DAYS
  3. ALFACALCIDOL(ALFACALCIDOL) [Concomitant]
  4. ALUMINUM HYDROXIDE TAB [Concomitant]
  5. ASPIRIN [Concomitant]
  6. CALCIUM ACETATE(CALCIUM ACETATE) [Concomitant]
  7. CLONAZEPAM [Concomitant]
  8. DILTIAZEM HCL [Concomitant]
  9. ERYTHROPOETIN(ERYTHROPOETIN) [Concomitant]
  10. FLOXACILLIN SODIUM [Concomitant]
  11. FOLIC ACID [Concomitant]
  12. GENTAMICIN [Concomitant]
  13. IRON SUCROSE(IRON SUCROSE) [Concomitant]
  14. MIXTARD HUMAN 70/30 [Concomitant]
  15. NICORANDIL(NICORANDIL) [Concomitant]
  16. OROVITE(OROVITE) [Concomitant]
  17. PENICILLIN V(PENICILLIN V) [Concomitant]
  18. SERTRALINE HCL [Concomitant]
  19. WARFARIN SODIUM [Concomitant]

REACTIONS (5)
  - ALANINE AMINOTRANSFERASE INCREASED [None]
  - ARTHRITIS BACTERIAL [None]
  - ASPARTATE AMINOTRANSFERASE INCREASED [None]
  - DRUG INTERACTION [None]
  - RHABDOMYOLYSIS [None]
